FAERS Safety Report 9026326 (Version 1)
Quarter: 2012Q4

REPORT INFORMATION
  Report Type: Spontaneous
  Country: US (occurrence: None)
  Receive Date: 20121231
  Receipt Date: 20121231
  Transmission Date: 20130627
  Serious: Yes (Other)
  Sender: FDA-Public Use
  Company Number: 2012034312

PATIENT
  Sex: Male
  Weight: 64.41 kg

DRUGS (13)
  1. HIZENTRA (IMMUNOGLOBULIN HUMAN NORMAL) [Suspect]
     Indication: IMMUNODEFICIENCY COMMON VARIABLE
     Dosage: 9 gm 1x/week, in 3-4 sites over 1-2 hours Subcutaneous
     Route: 058
     Dates: start: 20121217, end: 20121217
  2. HIZENTRA (IMMUNOGLOBULIN HUMAN NORMAL) [Suspect]
     Indication: IMMUNODEFICIENCY COMMON VARIABLE
     Dosage: 9 gm 1x/week, in 3-4 sites over 1-2 hours Subcutaneous
     Dates: start: 20121217, end: 20121217
  3. ACETAMINOPHEN (PARACETAMOL) [Concomitant]
  4. DIPHENHYDRAMINE (DIPHENHYDRAMINE) [Concomitant]
  5. LIDOCAINE/PRILOCAINE (EMLA /00675501/) [Concomitant]
  6. EPI-PEN (EPINEPHRINE) [Concomitant]
  7. LMX (LIDOCAINE) [Concomitant]
  8. TRIAMCINOLONE (TRIAMCINOLONE) [Concomitant]
  9. FEXOFENADINE (FEXOFENADINE) [Concomitant]
  10. FLONASE (FLUTICASONE PROPIONATE) [Concomitant]
  11. AMBIEN (ZOLPIDEM TARTRATE) [Concomitant]
  12. HYDROCODONE-APAP (PROCET /01554201/) [Concomitant]
  13. FLOMAX (TAMSULOSIN HYDROCHLORIDE) [Concomitant]

REACTIONS (2)
  - Drug ineffective [None]
  - Viral upper respiratory tract infection [None]
